FAERS Safety Report 13194758 (Version 1)
Quarter: 2017Q1

REPORT INFORMATION
  Report Type: Spontaneous
  Country: US (occurrence: US)
  Receive Date: 20170207
  Receipt Date: 20170207
  Transmission Date: 20170428
  Serious: No
  Sender: FDA-Public Use
  Company Number: US-JAZZ-2016-US-021544

PATIENT
  Age: 50 Year
  Sex: Female
  Weight: 100 kg

DRUGS (30)
  1. PRIALT [Suspect]
     Active Substance: ZICONOTIDE ACETATE
     Indication: INTERVERTEBRAL DISC DEGENERATION
  2. PRIALT [Suspect]
     Active Substance: ZICONOTIDE ACETATE
     Indication: ARTHROPATHY
  3. MOTRIN [Concomitant]
     Active Substance: IBUPROFEN
     Indication: LUMBAR RADICULOPATHY
     Dosage: 800 MG, TID
     Route: 048
  4. PRIALT [Suspect]
     Active Substance: ZICONOTIDE ACETATE
     Indication: LUMBAR RADICULOPATHY
  5. PRIALT [Suspect]
     Active Substance: ZICONOTIDE ACETATE
     Indication: SPINAL PAIN
  6. DILAUDID [Suspect]
     Active Substance: HYDROMORPHONE HYDROCHLORIDE
     Indication: BACK PAIN
  7. DILAUDID [Suspect]
     Active Substance: HYDROMORPHONE HYDROCHLORIDE
     Indication: POST LAMINECTOMY SYNDROME
  8. DILAUDID [Suspect]
     Active Substance: HYDROMORPHONE HYDROCHLORIDE
     Indication: PAIN
  9. BUPIVACAINE. [Suspect]
     Active Substance: BUPIVACAINE
     Indication: PAIN
  10. GABAPENTINE [Concomitant]
     Active Substance: GABAPENTIN
     Indication: PAIN
     Dosage: UNK MG, QD
  11. PRIALT [Suspect]
     Active Substance: ZICONOTIDE ACETATE
     Indication: PAIN
  12. BUPIVACAINE. [Suspect]
     Active Substance: BUPIVACAINE
     Indication: INTERVERTEBRAL DISC PROTRUSION
     Dosage: UNK MG, QH
     Route: 037
  13. BUPIVACAINE. [Suspect]
     Active Substance: BUPIVACAINE
     Indication: POST LAMINECTOMY SYNDROME
  14. BUPIVACAINE. [Suspect]
     Active Substance: BUPIVACAINE
     Indication: SPINAL PAIN
  15. MOTRIN [Concomitant]
     Active Substance: IBUPROFEN
     Indication: INTERVERTEBRAL DISC PROTRUSION
  16. CARISOPRODOL. [Concomitant]
     Active Substance: CARISOPRODOL
     Indication: LUMBAR RADICULOPATHY
     Dosage: 350 MG, TID
     Route: 048
  17. PRIALT [Suspect]
     Active Substance: ZICONOTIDE ACETATE
     Indication: INTERVERTEBRAL DISC PROTRUSION
     Dosage: UNK UNK, QH
     Route: 037
     Dates: start: 20160403
  18. BUPIVACAINE. [Suspect]
     Active Substance: BUPIVACAINE
     Indication: ARTHROPATHY
  19. BUPIVACAINE. [Suspect]
     Active Substance: BUPIVACAINE
     Indication: LUMBAR RADICULOPATHY
  20. OXYCODONE AND ACETAMINOPHEN [Concomitant]
     Active Substance: ACETAMINOPHEN\OXYCODONE HYDROCHLORIDE
     Indication: LUMBAR RADICULOPATHY
     Dosage: UNK, QID (7.25-325 MG QID PRN)
  21. PRIALT [Suspect]
     Active Substance: ZICONOTIDE ACETATE
     Indication: BACK PAIN
  22. DILAUDID [Suspect]
     Active Substance: HYDROMORPHONE HYDROCHLORIDE
     Indication: INTERVERTEBRAL DISC PROTRUSION
     Dosage: UNK MG, QH
     Route: 037
  23. DILAUDID [Suspect]
     Active Substance: HYDROMORPHONE HYDROCHLORIDE
     Indication: INTERVERTEBRAL DISC DEGENERATION
     Dosage: UNK MG, QH
     Route: 037
  24. ASPIRIN 81 [Concomitant]
     Active Substance: ASPIRIN
     Indication: LUMBAR RADICULOPATHY
     Dosage: 81 MG, QD
     Route: 048
  25. PRIALT [Suspect]
     Active Substance: ZICONOTIDE ACETATE
     Indication: POST LAMINECTOMY SYNDROME
  26. DILAUDID [Suspect]
     Active Substance: HYDROMORPHONE HYDROCHLORIDE
     Indication: ARTHROPATHY
  27. DILAUDID [Suspect]
     Active Substance: HYDROMORPHONE HYDROCHLORIDE
     Indication: LUMBAR RADICULOPATHY
  28. DILAUDID [Suspect]
     Active Substance: HYDROMORPHONE HYDROCHLORIDE
     Indication: SPINAL PAIN
  29. BUPIVACAINE. [Suspect]
     Active Substance: BUPIVACAINE
     Indication: INTERVERTEBRAL DISC DEGENERATION
  30. BUPIVACAINE. [Suspect]
     Active Substance: BUPIVACAINE
     Indication: BACK PAIN

REACTIONS (9)
  - Muscular weakness [Unknown]
  - Pain in extremity [Unknown]
  - Fall [Recovered/Resolved]
  - Chest pain [Unknown]
  - Cataract [Unknown]
  - Joint stiffness [Unknown]
  - Gallbladder disorder [Unknown]
  - Back pain [Recovering/Resolving]
  - Gait disturbance [Unknown]

NARRATIVE: CASE EVENT DATE: 20161103
